FAERS Safety Report 5140760-8 (Version None)
Quarter: 2006Q4

REPORT INFORMATION
  Report Type: 
  Country: None (occurrence: None)
  Receive Date: 20061025
  Receipt Date: 20061017
  Transmission Date: 20070319
  Serious: Yes (Hospitalization)
  Sender: FDA-Public Use
  Company Number: BR-2006-031686

PATIENT
  Age: 35 Year
  Sex: Female
  Weight: 57 kg

DRUGS (2)
  1. MIRENA [Suspect]
     Indication: ENDOMETRIOSIS
     Dosage: 20 UG/DAY, CONT, INTRA-UTERINE
     Dates: start: 20000101, end: 20051023
  2. LUPRON [Concomitant]

REACTIONS (3)
  - AMENORRHOEA [None]
  - HYSTEROTOMY [None]
  - OOPHORECTOMY [None]
